FAERS Safety Report 9288212 (Version 2)
Quarter: 2013Q2

REPORT INFORMATION
  Report Type: Spontaneous
  Country: US (occurrence: US)
  Receive Date: 20130514
  Receipt Date: 20130603
  Transmission Date: 20140414
  Serious: Yes (Other)
  Sender: FDA-Public Use
  Company Number: US-JNJFOC-20130505510

PATIENT
  Age: 18 Year
  Sex: Male

DRUGS (8)
  1. ACETAMINOPHEN [Suspect]
     Indication: PROCEDURAL PAIN
     Dosage: 2 CAPLETS (500MG) AT 10:06
     Route: 065
     Dates: start: 20100923
  2. PLACEBO [Suspect]
     Indication: PROCEDURAL PAIN
     Dosage: 2 CAPLETS (TWO 325MG CAPLET)
     Route: 065
  3. NITROUS OXIDE [Concomitant]
     Indication: ANAESTHESIA
     Route: 055
     Dates: start: 20100923, end: 20100923
  4. ADVIL [Concomitant]
     Indication: PROCEDURAL PAIN
     Dosage: ADVIL LIQUI-GELS
     Route: 048
     Dates: start: 20100923
  5. AMOXICILLIN [Concomitant]
     Indication: INFECTION PROPHYLAXIS
     Route: 048
     Dates: start: 20100923
  6. BENZOCAINE [Concomitant]
     Indication: ANAESTHESIA
     Route: 061
     Dates: start: 20100923, end: 20100923
  7. LIDOCAINE/EPINEPHRINE [Concomitant]
     Indication: ANAESTHESIA
     Dosage: PERIODONTAL ROUTE OF ADMINISTRATION
     Route: 050
     Dates: start: 20100923, end: 20100923
  8. OXYGEN [Concomitant]
     Indication: ANAESTHESIA
     Route: 055
     Dates: start: 20100923, end: 20100923

REACTIONS (3)
  - Syncope [Recovered/Resolved]
  - Epistaxis [Recovered/Resolved]
  - Feeling hot [Recovered/Resolved]
